FAERS Safety Report 17135739 (Version 1)
Quarter: 2019Q4

REPORT INFORMATION
  Report Type: Report from Study
  Country: CA (occurrence: CA)
  Receive Date: 20191210
  Receipt Date: 20191210
  Transmission Date: 20200122
  Serious: Yes (Death, Hospitalization, Other)
  Sender: FDA-Public Use
  Company Number: CA-PFIZER INC-2019530541

PATIENT
  Age: 64 Year
  Sex: Female

DRUGS (17)
  1. SANDOSTATIN [Suspect]
     Active Substance: OCTREOTIDE ACETATE
     Indication: NEUROENDOCRINE TUMOUR
     Dosage: 20 MG, MONTHLY
     Route: 030
  2. SANDOSTATIN [Suspect]
     Active Substance: OCTREOTIDE ACETATE
     Dosage: 30 MG, MONTHLY
     Route: 030
  3. VALSARTAN. [Suspect]
     Active Substance: VALSARTAN
     Dosage: 160 MG, 1X/DAY
     Route: 065
  4. SANDOSTATIN [Suspect]
     Active Substance: OCTREOTIDE ACETATE
     Dosage: 50 MG, MONTHLY
     Route: 030
  5. PANTOPRAZOLE [Suspect]
     Active Substance: PANTOPRAZOLE
     Dosage: 40 MG, 1X/DAY
     Route: 048
  6. SANDOSTATIN [Suspect]
     Active Substance: OCTREOTIDE ACETATE
     Dosage: 20 MG, MONTHLY
     Route: 030
  7. SANDOSTATIN [Suspect]
     Active Substance: OCTREOTIDE ACETATE
     Dosage: 200 UG, 3X/DAY
     Route: 058
  8. CELEBREX [Suspect]
     Active Substance: CELECOXIB
     Indication: PAIN
     Dosage: UNK
     Route: 065
  9. SANDOSTATIN [Suspect]
     Active Substance: OCTREOTIDE ACETATE
     Dosage: 100 UG, 3X/DAY
     Route: 058
  10. SANDOSTATIN [Suspect]
     Active Substance: OCTREOTIDE ACETATE
     Dosage: 200 UG, UNK
     Route: 058
  11. DILTIAZEM. [Concomitant]
     Active Substance: DILTIAZEM
     Dosage: 160 MG, 1X/DAY
     Route: 048
  12. IMODIUM [Concomitant]
     Active Substance: LOPERAMIDE HYDROCHLORIDE
     Dosage: UNK
     Route: 065
  13. SANDOSTATIN [Suspect]
     Active Substance: OCTREOTIDE ACETATE
     Dosage: 30 MG, MONTHLY
     Route: 030
  14. SANDOSTATIN [Suspect]
     Active Substance: OCTREOTIDE ACETATE
     Dosage: 30 MG, MONTHLY
     Route: 030
  15. DIOVAN [Suspect]
     Active Substance: VALSARTAN
     Dosage: 80 MG, 1X/DAY
     Route: 048
  16. SANDOSTATIN [Suspect]
     Active Substance: OCTREOTIDE ACETATE
     Dosage: 60 MG, MONTHLY
     Route: 030
  17. CLONAZEPAM. [Concomitant]
     Active Substance: CLONAZEPAM
     Dosage: 2 MG, UNK
     Route: 048

REACTIONS (38)
  - Memory impairment [Fatal]
  - Nausea [Fatal]
  - Oropharyngeal pain [Fatal]
  - Second primary malignancy [Fatal]
  - Back pain [Fatal]
  - Blood pressure increased [Fatal]
  - Myalgia [Fatal]
  - Pancreatic disorder [Fatal]
  - Pneumonia [Fatal]
  - Cardiac disorder [Fatal]
  - Drug ineffective [Fatal]
  - Injection site pain [Fatal]
  - Pain in extremity [Fatal]
  - Cerebrovascular accident [Fatal]
  - Death [Fatal]
  - Ear pain [Fatal]
  - Headache [Fatal]
  - Osteoarthritis [Fatal]
  - Chest pain [Fatal]
  - Constipation [Fatal]
  - Flushing [Fatal]
  - Hepatic pain [Fatal]
  - Loss of consciousness [Fatal]
  - Oedema peripheral [Fatal]
  - Pain [Fatal]
  - Abdominal pain [Fatal]
  - Alopecia [Fatal]
  - Coma [Fatal]
  - Cough [Fatal]
  - Diarrhoea [Fatal]
  - Rhinorrhoea [Fatal]
  - Brain neoplasm [Fatal]
  - Confusional state [Fatal]
  - Decreased appetite [Fatal]
  - Heart rate decreased [Fatal]
  - Abdominal distension [Fatal]
  - Blood pressure diastolic decreased [Fatal]
  - Fatigue [Fatal]
